FAERS Safety Report 9700764 (Version 1)
Quarter: 2013Q4

REPORT INFORMATION
  Report Type: Report from Study
  Country: NL (occurrence: NL)
  Receive Date: 20131121
  Receipt Date: 20131121
  Transmission Date: 20140711
  Serious: Yes (Other)
  Sender: FDA-Public Use
  Company Number: PHHY2013NL132455

PATIENT
  Age: 67 Year
  Sex: Male

DRUGS (3)
  1. ZOMETA [Suspect]
     Indication: PROSTATE CANCER METASTATIC
     Dosage: 4 MG/100 ML (ONCE PER 12 WEEKS)
     Route: 042
  2. ZOMETA [Suspect]
     Dosage: 4 MG/100 ML (ONCE PER 12 WEEKS)
     Route: 042
     Dates: start: 20100714
  3. ZOMETA [Suspect]
     Dosage: 4 MG/100 ML (ONCE PER 12 WEEKS)
     Route: 042
     Dates: start: 20130807

REACTIONS (1)
  - Terminal state [Unknown]
